FAERS Safety Report 9311419 (Version 1)
Quarter: 2013Q2

REPORT INFORMATION
  Report Type: Spontaneous
  Country: ES (occurrence: ES)
  Receive Date: 20130528
  Receipt Date: 20130528
  Transmission Date: 20140414
  Serious: Yes (Hospitalization)
  Sender: FDA-Public Use
  Company Number: ES-JNJFOC-20130517721

PATIENT
  Age: 81 Year
  Sex: Female

DRUGS (9)
  1. TRAMADOL HYDROCHLORIDE [Suspect]
     Indication: OSTEOARTHRITIS
     Dosage: THERAPY DURATION UNTIL ADR ONSET: SUDDENLY AFTER INTAKE
     Route: 048
  2. DICLOFENAC [Concomitant]
     Route: 054
  3. IBUPROFEN [Concomitant]
     Route: 048
  4. PARACETAMOL [Concomitant]
     Route: 048
  5. SERTRALINE [Concomitant]
     Route: 048
  6. OMEPRAZOLE [Concomitant]
     Route: 048
  7. CALCIUM CARBONATE W/COLECALCIFEROL [Concomitant]
     Route: 048
  8. IRON [Concomitant]
     Route: 048
  9. CODEINE [Concomitant]
     Route: 048

REACTIONS (5)
  - Acute psychosis [Recovered/Resolved]
  - Persecutory delusion [Recovered/Resolved]
  - Hallucination, auditory [Recovered/Resolved]
  - Hallucination, visual [Recovered/Resolved]
  - Insomnia [Recovered/Resolved]
